FAERS Safety Report 11295069 (Version 7)
Quarter: 2018Q1

REPORT INFORMATION
  Report Type: Spontaneous
  Country: US (occurrence: US)
  Receive Date: 20150723
  Receipt Date: 20180226
  Transmission Date: 20180508
  Serious: Yes (Hospitalization)
  Sender: FDA-Public Use
  Company Number: US-PFIZER INC-2015128217

PATIENT
  Age: 57 Year
  Sex: Female
  Weight: 54 kg

DRUGS (33)
  1. LYRICA [Suspect]
     Active Substance: PREGABALIN
     Dosage: 200 MG, 3X/DAY
     Route: 048
     Dates: start: 20180207
  2. PERCOCET [Concomitant]
     Active Substance: ACETAMINOPHEN\OXYCODONE HYDROCHLORIDE
     Dosage: UNK, 2X/DAY (10-325) [1 EVERY 12 HOURS]
     Dates: start: 20160104
  3. SYMBICORT [Concomitant]
     Active Substance: BUDESONIDE\FORMOTEROL FUMARATE DIHYDRATE
     Indication: ASTHMA
     Dosage: TWO INHALATIONS BY MOUTH, 2X/DAY
     Route: 055
  4. LYRICA [Suspect]
     Active Substance: PREGABALIN
     Dosage: 200 MG, 2X/DAY
     Route: 048
     Dates: start: 20150803
  5. MS CONTIN [Concomitant]
     Active Substance: MORPHINE SULFATE
     Indication: BACK PAIN
     Dosage: 30 MG, 3X/DAY
     Route: 048
     Dates: start: 2013
  6. ZANAFLEX [Concomitant]
     Active Substance: TIZANIDINE HYDROCHLORIDE
     Indication: MUSCLE SPASMS
     Dosage: 4 MG, 3X/DAY
     Route: 048
     Dates: start: 20160104
  7. FOSAMAX [Concomitant]
     Active Substance: ALENDRONATE SODIUM
     Indication: OSTEOPOROSIS
     Dosage: 70 MG, WEEKLY
     Route: 048
     Dates: start: 20160104
  8. NEXIUM [Concomitant]
     Active Substance: ESOMEPRAZOLE MAGNESIUM
     Indication: GASTROOESOPHAGEAL REFLUX DISEASE
     Dosage: 40 MG, DAILY
     Route: 048
     Dates: start: 20160104
  9. LYRICA [Suspect]
     Active Substance: PREGABALIN
     Dosage: 200 MG, 3X/DAY
     Route: 048
     Dates: start: 20160104, end: 20160418
  10. MS CONTIN [Concomitant]
     Active Substance: MORPHINE SULFATE
     Dosage: 30 MG, 2X/DAY
     Route: 048
     Dates: start: 20160104
  11. TUDORZA PRESSAIR [Concomitant]
     Active Substance: ACLIDINIUM BROMIDE
     Indication: EMPHYSEMA
  12. XANAX [Concomitant]
     Active Substance: ALPRAZOLAM
     Indication: ANXIETY
     Dosage: 1 MG, THREE TIMES A DAY IF NEEDED
     Route: 048
     Dates: start: 20160104
  13. SYMBICORT [Concomitant]
     Active Substance: BUDESONIDE\FORMOTEROL FUMARATE DIHYDRATE
     Indication: CHRONIC OBSTRUCTIVE PULMONARY DISEASE
  14. SYMBICORT [Concomitant]
     Active Substance: BUDESONIDE\FORMOTEROL FUMARATE DIHYDRATE
     Indication: EMPHYSEMA
  15. TUDORZA PRESSAIR [Concomitant]
     Active Substance: ACLIDINIUM BROMIDE
     Indication: ASTHMA
     Dosage: ONE INHALATION, 2X/DAY
     Route: 055
  16. TUDORZA PRESSAIR [Concomitant]
     Active Substance: ACLIDINIUM BROMIDE
     Indication: CHRONIC OBSTRUCTIVE PULMONARY DISEASE
     Dosage: 400 UG, 2X/DAY (1 PUFF)
     Dates: start: 20160104
  17. BENTYL [Concomitant]
     Active Substance: DICYCLOMINE HYDROCHLORIDE
     Indication: ABDOMINAL PAIN UPPER
     Dosage: 10 MG, FOUR TIMES A DAY WHEN NEEDED
     Route: 048
  18. LYRICA [Suspect]
     Active Substance: PREGABALIN
     Dosage: 200 MG, 3X/DAY
     Route: 048
     Dates: start: 2011
  19. PROMETHAZINE [Concomitant]
     Active Substance: PROMETHAZINE\PROMETHAZINE HYDROCHLORIDE
     Indication: NAUSEA
     Dosage: 25 MG, EVERY SIX HOURS IF NEEDED
     Route: 048
     Dates: start: 20160104
  20. MORPHINE SULFATE. [Concomitant]
     Active Substance: MORPHINE SULFATE
     Dosage: 15 MG, 1X/DAY (AT LUNCH)
     Route: 048
     Dates: start: 20160104
  21. CRESTOR [Concomitant]
     Active Substance: ROSUVASTATIN CALCIUM
     Indication: BLOOD CHOLESTEROL INCREASED
     Dosage: 20 MG, DAILY
     Route: 048
     Dates: start: 20160104
  22. BUTALBITAL, ACETAMINOPHEN, AND CAFFEINE [Concomitant]
     Active Substance: ACETAMINOPHEN\BUTALBITAL\CAFFEINE
     Dosage: UNK, AS NEEDED (BUTALBITAL: 50 MG; CAFFEINE: 325MG; PARACETAMOL; 40 MG) (1 TABLET EVERY FOUR HOURS)
     Route: 048
     Dates: start: 20160104
  23. FLUTICASONE PROPIONATE. [Concomitant]
     Active Substance: FLUTICASONE PROPIONATE
     Dosage: 50 UG, 1X/DAY (2 SPRAYS IN EACH NOSTRIL )
     Route: 045
     Dates: start: 20160104
  24. VANCOMYCIN [Concomitant]
     Active Substance: VANCOMYCIN
     Dosage: 5 ML, 4X/DAY
     Dates: start: 20160104
  25. QUESTRAN [Concomitant]
     Active Substance: CHOLESTYRAMINE
     Dosage: 4 G, 1X/DAY (DISSOLVE 1 PACKET IN LIQUID )
     Dates: start: 20160104
  26. VALTREX [Concomitant]
     Active Substance: VALACYCLOVIR HYDROCHLORIDE
     Indication: HERPES SIMPLEX
     Dosage: 1 G, 2X/DAY
     Route: 048
     Dates: start: 20160104
  27. LYRICA [Suspect]
     Active Substance: PREGABALIN
     Indication: FIBROMYALGIA
     Dosage: 200 MG, 3X/DAY
     Route: 048
     Dates: start: 2009
  28. PERCOCET [Concomitant]
     Active Substance: ACETAMINOPHEN\OXYCODONE HYDROCHLORIDE
     Indication: BACK PAIN
     Dosage: 30 MG, UNK
     Dates: start: 2008
  29. BUTALBITAL, ACETAMINOPHEN, AND CAFFEINE [Concomitant]
     Active Substance: ACETAMINOPHEN\BUTALBITAL\CAFFEINE
     Indication: HEADACHE
     Dosage: ONE TO TWO TABLETS BY MOUTH EVERY 4 HOURS WITH A MAXIMUM DOSE OF SIX
     Route: 048
  30. SULFAZINE [Concomitant]
     Active Substance: SULFASALAZINE
     Dosage: 500 MG, 2X/DAY
     Route: 048
     Dates: start: 20160104
  31. BENTYL [Concomitant]
     Active Substance: DICYCLOMINE HYDROCHLORIDE
     Indication: MUSCLE SPASMS
     Dosage: 20 MG, AS NEEDED (4 TIMES A DAY)
     Dates: start: 20160104
  32. PERCOCET [Concomitant]
     Active Substance: ACETAMINOPHEN\OXYCODONE HYDROCHLORIDE
     Dosage: 10 MG, 2X/DAY
     Route: 048
  33. VIIBRYD [Concomitant]
     Active Substance: VILAZODONE HYDROCHLORIDE
     Indication: DEPRESSION
     Dosage: 40 MG, DAILY
     Route: 048
     Dates: start: 20160104

REACTIONS (14)
  - Drug withdrawal syndrome [Not Recovered/Not Resolved]
  - Diarrhoea [Not Recovered/Not Resolved]
  - Chills [Not Recovered/Not Resolved]
  - Overdose [Unknown]
  - Intervertebral disc disorder [Not Recovered/Not Resolved]
  - Headache [Unknown]
  - Asthenia [Recovered/Resolved]
  - Influenza like illness [Recovered/Resolved]
  - Oesophageal achalasia [Unknown]
  - Back pain [Unknown]
  - Cellulitis staphylococcal [Recovered/Resolved]
  - Neck pain [Unknown]
  - Nausea [Recovered/Resolved]
  - Vomiting [Not Recovered/Not Resolved]

NARRATIVE: CASE EVENT DATE: 2009
